FAERS Safety Report 8965670 (Version 3)
Quarter: 2013Q1

REPORT INFORMATION
  Report Type: Spontaneous
  Country: JP (occurrence: None)
  Receive Date: 20121205
  Receipt Date: 20121228
  Transmission Date: 20140127
  Serious: Yes (Other)
  Sender: FDA-Public Use
  Company Number: JP-20120067

PATIENT
  Age: 19 Year
  Sex: Female

DRUGS (2)
  1. LIPIODOL [Suspect]
     Indication: THERAPEUTIC EMBOLISATION
     Route: 013
     Dates: start: 20110916
  2. EPIRUBICIN [Suspect]
     Indication: THERAPEUTIC EMBOLISATION
     Route: 013

REACTIONS (4)
  - Thrombocytopenia [None]
  - Hyperbilirubinaemia [None]
  - Cardiac failure [None]
  - Off label use [None]
